FAERS Safety Report 11192925 (Version 1)
Quarter: 2015Q2

REPORT INFORMATION
  Report Type: Spontaneous
  Country: US (occurrence: None)
  Receive Date: 20150603
  Receipt Date: 20150603
  Transmission Date: 20150821
  Serious: No
  Sender: FDA-Public Use
  Company Number: 2015TASUS000690

PATIENT
  Age: 51 Year
  Sex: Female
  Weight: 86.2 kg

DRUGS (4)
  1. ESCITALOPRAM [Concomitant]
     Active Substance: ESCITALOPRAM OXALATE
  2. MIDOL (ACETYLSALICYLIC ACID) [Concomitant]
  3. HETLIOZ [Suspect]
     Active Substance: TASIMELTEON
     Indication: CIRCADIAN RHYTHM SLEEP DISORDER
     Route: 048
     Dates: start: 20150103
  4. EXCEDRIN (ACETYLSALICYLIC ACID, CAFFEINE, PARACETAMOL, SALICYLAMIDE) [Concomitant]

REACTIONS (1)
  - Drug ineffective [None]
